FAERS Safety Report 6509479-2 (Version None)
Quarter: 2009Q4

REPORT INFORMATION
  Report Type: 
  Country: None (occurrence: None)
  Receive Date: 20091216
  Receipt Date: 20091203
  Transmission Date: 20100525
  Serious: Yes (Death, Life-Threatening, Hospitalization)
  Sender: FDA-Public Use
  Company Number: WAES 0601TWN00002

PATIENT
  Age: 81 Year
  Sex: Male

DRUGS (6)
  1. COZAAR [Suspect]
     Indication: CARDIAC FAILURE CONGESTIVE
     Dosage: 150 MG/DAILY
     Route: 048
     Dates: start: 20030710, end: 20051226
  2. CARVEDILOL [Concomitant]
  3. CLOPIDOGREL BISULFATE [Concomitant]
  4. FUROSEMIDE [Concomitant]
  5. GLIMEPIRIDE [Concomitant]
  6. ISOSORBIDE DINITRATE [Concomitant]

REACTIONS (8)
  - ABDOMINAL PAIN UPPER [None]
  - CARDIAC ENZYMES INCREASED [None]
  - CHEST PAIN [None]
  - PROCEDURAL PAIN [None]
  - RENAL FAILURE ACUTE [None]
  - SEPTIC SHOCK [None]
  - URINARY TRACT PAIN [None]
  - UROSEPSIS [None]
